FAERS Safety Report 9220680 (Version 1)
Quarter: 2013Q1

REPORT INFORMATION
  Report Type: Spontaneous
  Country: US (occurrence: None)
  Receive Date: 20120831
  Receipt Date: 20120831
  Transmission Date: 20140127
  Serious: No
  Sender: FDA-Public Use
  Company Number: 1000030188

PATIENT
  Age: 63 Year
  Sex: Female

DRUGS (4)
  1. DALIRESP [Suspect]
     Indication: CHRONIC OBSTRUCTIVE PULMONARY DISEASE
     Dates: start: 20120425, end: 20120428
  2. SPIRIVA (TIOTROPIUM BROMIDE) (TIOTROPIUM BROMIDE) [Concomitant]
  3. ALBUTEROL (ALBUTEROL) (ALBUTEROL) [Concomitant]
  4. THEOPHYLLINE (THEOPHYLLINE) (THEOPHYLLINE) [Concomitant]

REACTIONS (1)
  - Back pain [None]
